FAERS Safety Report 5745500-7 (Version None)
Quarter: 2008Q2

REPORT INFORMATION
  Report Type: 
  Country: None (occurrence: None)
  Receive Date: 20080521
  Receipt Date: 20080507
  Transmission Date: 20081010
  Serious: Yes (Life-Threatening, Other)
  Sender: FDA-Public Use
  Company Number: NL-ELI_LILLY_AND_COMPANY-NL200804005171

PATIENT
  Sex: Male
  Weight: 29 kg

DRUGS (1)
  1. STRATTERA [Suspect]
     Indication: ATTENTION DEFICIT/HYPERACTIVITY DISORDER
     Dosage: 40 MG, DAILY (1/D)
     Route: 048
     Dates: start: 20071004, end: 20080422

REACTIONS (6)
  - AFFECT LABILITY [None]
  - DEPRESSION [None]
  - HALLUCINATIONS, MIXED [None]
  - INITIAL INSOMNIA [None]
  - SUICIDAL BEHAVIOUR [None]
  - SUICIDAL IDEATION [None]
